FAERS Safety Report 17383472 (Version 1)
Quarter: 2020Q1

REPORT INFORMATION
  Report Type: Spontaneous
  Country: US (occurrence: US)
  Receive Date: 20200206
  Receipt Date: 20200206
  Transmission Date: 20200409
  Serious: No
  Sender: FDA-Public Use
  Company Number: US-ABBVIE-19K-163-2857772-00

PATIENT

DRUGS (2)
  1. HUMIRA [Suspect]
     Active Substance: ADALIMUMAB
     Indication: COLITIS ULCERATIVE
     Route: 058
  2. XELJANZ [Suspect]
     Active Substance: TOFACITINIB CITRATE
     Indication: COLITIS ULCERATIVE
     Route: 065

REACTIONS (6)
  - Colitis ulcerative [Unknown]
  - Drug ineffective [Unknown]
  - Flatulence [Unknown]
  - Gastrointestinal disorder [Recovering/Resolving]
  - Defaecation urgency [Recovering/Resolving]
  - Dairy intolerance [Unknown]
